FAERS Safety Report 18853971 (Version 3)
Quarter: 2022Q2

REPORT INFORMATION
  Report Type: Spontaneous
  Country: US (occurrence: US)
  Receive Date: 20210205
  Receipt Date: 20220428
  Transmission Date: 20220721
  Serious: No
  Sender: FDA-Public Use
  Company Number: US-PFIZER INC-2021081153

PATIENT
  Age: 69 Year
  Sex: Male
  Weight: 95.25 kg

DRUGS (2)
  1. NARDIL [Suspect]
     Active Substance: PHENELZINE SULFATE
     Indication: Major depression
     Dosage: 15 MG, [15MG UNCOATED TABLET TAKEN 5 TIMES DAILY]
  2. NARDIL [Suspect]
     Active Substance: PHENELZINE SULFATE
     Dosage: 15 MG, 2X/DAY
     Dates: start: 1982

REACTIONS (3)
  - Feeling abnormal [Unknown]
  - Headache [Unknown]
  - Therapeutic product effect incomplete [Unknown]
